FAERS Safety Report 17468229 (Version 1)
Quarter: 2020Q1

REPORT INFORMATION
  Report Type: Report from Study
  Country: CA (occurrence: CA)
  Receive Date: 20200227
  Receipt Date: 20200227
  Transmission Date: 20200409
  Serious: Yes (Other)
  Sender: FDA-Public Use
  Company Number: CA-JNJFOC-20200228052

PATIENT
  Sex: Female
  Weight: 78.2 kg

DRUGS (1)
  1. SIMPONI [Suspect]
     Active Substance: GOLIMUMAB
     Indication: ANKYLOSING SPONDYLITIS
     Dosage: STRENGTH = 156.4 MG
     Route: 042
     Dates: start: 20181219

REACTIONS (2)
  - Cellulitis [Unknown]
  - External ear cellulitis [Unknown]
